FAERS Safety Report 14665334 (Version 3)
Quarter: 2018Q2

REPORT INFORMATION
  Report Type: Report from Study
  Country: TR (occurrence: TR)
  Receive Date: 20180321
  Receipt Date: 20180605
  Transmission Date: 20180711
  Serious: Yes (Hospitalization)
  Sender: FDA-Public Use
  Company Number: TR-PFIZER INC-2018113094

PATIENT
  Age: 48 Year
  Sex: Female
  Weight: 69.8 kg

DRUGS (9)
  1. CARBOPLATIN. [Suspect]
     Active Substance: CARBOPLATIN
     Indication: NEOPLASM
     Dosage: 830 (UNIT NOT PROVIDED), EVERY 3 WEEKS
     Dates: start: 20171229
  2. ENOXAPARIN [Concomitant]
     Active Substance: ENOXAPARIN
     Indication: PROPHYLAXIS
     Dosage: 0.4 ML, 2X/DAY
     Route: 058
     Dates: start: 20171225, end: 20180323
  3. CEFUROXIME. [Concomitant]
     Active Substance: CEFUROXIME
     Indication: ANTI-INFECTIVE THERAPY
     Dosage: 500 MG, 2X/DAY
     Route: 048
     Dates: start: 20171228
  4. LANSOPRAZOL [Concomitant]
     Active Substance: LANSOPRAZOLE
     Indication: PROPHYLAXIS
     Dosage: 30 MG, 1X/DAY
     Dates: start: 20171229
  5. TAXOL [Suspect]
     Active Substance: PACLITAXEL
     Indication: NEOPLASM
     Dosage: 140 (UNIT NOT PROVIDED), WEEKLY
     Dates: start: 20171229
  6. AVELUMAB [Suspect]
     Active Substance: AVELUMAB
     Indication: NEOPLASM
     Dosage: 740 (UNIT NOT PROVIDED), EVERY 3 WEEKS
     Route: 042
     Dates: start: 20171229
  7. PARACETAMOL [Concomitant]
     Active Substance: ACETAMINOPHEN
     Indication: PAIN
     Dosage: 500 MG, 2X/DAY
     Route: 048
     Dates: start: 20171228, end: 20180323
  8. ESCITALOPRAM OXALATE W/ETIZOLAM [Concomitant]
     Active Substance: ESCITALOPRAM\ETIZOLAM
     Indication: DEPRESSION
     Dosage: 10 MG, 1X/DAY
     Route: 048
     Dates: start: 20090101
  9. PARACETAMOL [Concomitant]
     Active Substance: ACETAMINOPHEN
     Dosage: 10 MG, 2X/DAY
     Dates: start: 20180323

REACTIONS (1)
  - Urinary tract infection [Recovered/Resolved]

NARRATIVE: CASE EVENT DATE: 20180314
